FAERS Safety Report 7743411-9 (Version None)
Quarter: 2011Q3

REPORT INFORMATION
  Report Type: 
  Country: None (occurrence: None)
  Receive Date: 20110912
  Receipt Date: 20110902
  Transmission Date: 20111222
  Serious: Yes (Other)
  Sender: FDA-Public Use
  Company Number: AU-NAPPMUNDI-USA-2009-0040273

PATIENT
  Sex: Male
  Weight: 89 kg

DRUGS (1)
  1. BUPRENORPHINE HYDROCHLORIDE [Suspect]
     Indication: POST HERPETIC NEURALGIA
     Dosage: UNK
     Route: 062
     Dates: start: 20090415, end: 20090922

REACTIONS (2)
  - LYMPHOMA [None]
  - PNEUMONIA [None]
